FAERS Safety Report 23641623 (Version 1)
Quarter: 2024Q1

REPORT INFORMATION
  Report Type: Spontaneous
  Country: IT (occurrence: IT)
  Receive Date: 20240318
  Receipt Date: 20240318
  Transmission Date: 20240410
  Serious: Yes (Other)
  Sender: FDA-Public Use
  Company Number: IT-ASTELLAS-2024EU002408

PATIENT
  Age: 63 Year
  Sex: Male

DRUGS (1)
  1. TACROLIMUS [Suspect]
     Active Substance: TACROLIMUS
     Indication: Liver transplant
     Dosage: 0.032 MG/KG, ONCE DAILY
     Route: 065
     Dates: start: 2023, end: 2023

REACTIONS (7)
  - Toxicity to various agents [Recovering/Resolving]
  - Hyperreflexia [Recovering/Resolving]
  - Dysmetria [Recovered/Resolved]
  - Cytotoxic oedema [Recovering/Resolving]
  - Central nervous system lesion [Recovering/Resolving]
  - Dysarthria [Recovering/Resolving]
  - Altered state of consciousness [Recovering/Resolving]

NARRATIVE: CASE EVENT DATE: 20230101
